FAERS Safety Report 4395776-6 (Version None)
Quarter: 2004Q3

REPORT INFORMATION
  Report Type: 
  Country: None (occurrence: None)
  Receive Date: 20040713
  Receipt Date: 20040701
  Transmission Date: 20050211
  Serious: Yes (Hospitalization, Other)
  Sender: FDA-Public Use
  Company Number: DE-AMGEN-US082436

PATIENT
  Sex: Female

DRUGS (1)
  1. ENBREL [Suspect]
     Indication: POLYARTHRITIS
     Route: 058
     Dates: end: 20040601

REACTIONS (3)
  - DEMYELINATING POLYNEUROPATHY [None]
  - DYSAESTHESIA [None]
  - NEUROPATHY PERIPHERAL [None]
